FAERS Safety Report 8078169-X (Version None)
Quarter: 2012Q1

REPORT INFORMATION
  Report Type: 
  Country: None (occurrence: None)
  Receive Date: 20120127
  Receipt Date: 20110927
  Transmission Date: 20120608
  Serious: No
  Sender: FDA-Public Use
  Company Number: US-BAUSCH-2011BL006485

PATIENT
  Age: 68 Year
  Sex: Female

DRUGS (1)
  1. ZYLET [Suspect]
     Indication: HYPERSENSITIVITY
     Route: 047
     Dates: start: 20110923, end: 20110924

REACTIONS (3)
  - EYE SWELLING [None]
  - OCULAR HYPERAEMIA [None]
  - LACRIMATION INCREASED [None]
